FAERS Safety Report 7711264-0 (Version None)
Quarter: 2011Q3

REPORT INFORMATION
  Report Type: 
  Country: None (occurrence: None)
  Receive Date: 20110826
  Receipt Date: 20110819
  Transmission Date: 20111222
  Serious: Yes (Hospitalization)
  Sender: FDA-Public Use
  Company Number: US-RB-027739-11

PATIENT
  Age: 24 Month
  Sex: Female

DRUGS (1)
  1. DELSYM [Suspect]
     Route: 048

REACTIONS (2)
  - LETHARGY [None]
  - ACCIDENTAL DRUG INTAKE BY CHILD [None]
